FAERS Safety Report 4283722-5 (Version None)
Quarter: 2004Q1

REPORT INFORMATION
  Report Type: 
  Country: None (occurrence: None)
  Receive Date: 20040115
  Receipt Date: 20030117
  Transmission Date: 20041129
  Serious: Yes (Other)
  Sender: FDA-Public Use
  Company Number: NSADSS2003002926

PATIENT
  Age: 58 Year
  Sex: Female
  Weight: 53.5244 kg

DRUGS (2)
  1. DOXIL [Suspect]
     Indication: OVARIAN CANCER
     Dosage: 60 MG, 1 IN 4 WEEK, INTRAVENOUS DRIP
     Route: 041
     Dates: start: 20030116, end: 20030116
  2. PROCRIT [Suspect]
     Indication: ANAEMIA
     Dosage: 40000 IU, 1 IN 1 WEEK
     Dates: start: 20011106

REACTIONS (5)
  - BLOOD PRESSURE INCREASED [None]
  - CHEST DISCOMFORT [None]
  - DYSPNOEA [None]
  - ERYTHEMA [None]
  - HYPERSENSITIVITY [None]
